FAERS Safety Report 17257728 (Version 7)
Quarter: 2021Q4

REPORT INFORMATION
  Report Type: Spontaneous
  Country: PL (occurrence: PL)
  Receive Date: 20200110
  Receipt Date: 20211021
  Transmission Date: 20220304
  Serious: Yes (Death, Life-Threatening, Hospitalization, Congenital Anomaly, Other)
  Sender: FDA-Public Use
  Company Number: PL-MENARINI-PL-MEN-068813

PATIENT
  Sex: Female
  Weight: 1.13 kg

DRUGS (2)
  1. ROSUVASTATIN [Suspect]
     Active Substance: ROSUVASTATIN
     Indication: Product used for unknown indication
     Dosage: UNK
     Route: 064
  2. IBUPROFEN [Suspect]
     Active Substance: IBUPROFEN
     Indication: Product used for unknown indication
     Dosage: UNK
     Route: 064

REACTIONS (12)
  - Neonatal asphyxia [Fatal]
  - Foetal heart rate deceleration abnormality [Fatal]
  - Respiratory distress [Fatal]
  - Cardiovascular insufficiency [Fatal]
  - Anuria [Fatal]
  - Neonatal respiratory failure [Fatal]
  - Foetal acidosis [Fatal]
  - Premature baby [Fatal]
  - Neonatal cardiac failure [Fatal]
  - Foetal exposure during pregnancy [Fatal]
  - Respiratory failure [Fatal]
  - Acute kidney injury [Recovered/Resolved]
